FAERS Safety Report 8439730-3 (Version None)
Quarter: 2012Q2

REPORT INFORMATION
  Report Type: 
  Country: None (occurrence: None)
  Receive Date: 20120615
  Receipt Date: 20120608
  Transmission Date: 20120825
  Serious: Yes (Hospitalization, Other)
  Sender: FDA-Public Use
  Company Number: IN-PFIZER INC-2012027468

PATIENT
  Age: 93 Year
  Sex: Male

DRUGS (3)
  1. SUTENT [Suspect]
     Indication: METASTATIC RENAL CELL CARCINOMA
     Dosage: 50 MG, 1X/DAY
     Route: 048
     Dates: start: 20120102, end: 20120128
  2. SUTENT [Suspect]
     Dosage: 37.5 MG, 1X/DAY
     Route: 048
     Dates: start: 20120606
  3. SUTENT [Suspect]
     Dosage: 50 MG, 1X/DAY
     Dates: start: 20120101

REACTIONS (7)
  - WHITE BLOOD CELL COUNT DECREASED [None]
  - OEDEMA PERIPHERAL [None]
  - SKIN EXFOLIATION [None]
  - FEMUR FRACTURE [None]
  - MOUTH ULCERATION [None]
  - VOMITING [None]
  - COUGH [None]
